FAERS Safety Report 6535052-6 (Version None)
Quarter: 2010Q1

REPORT INFORMATION
  Report Type: 
  Country: None (occurrence: None)
  Receive Date: 20100111
  Receipt Date: 20100111
  Transmission Date: 20100710
  Serious: Yes (Hospitalization, Other)
  Sender: FDA-Public Use
  Company Number: None

PATIENT
  Age: 49 Year
  Sex: Female
  Weight: 74.8435 kg

DRUGS (1)
  1. REMICADE [Suspect]
     Indication: CROHN'S DISEASE
     Dosage: BY BODY WEIGHT TIMES 4-8 WEEKS IV DRIP
     Route: 041
     Dates: start: 20020101, end: 20081201

REACTIONS (3)
  - INTESTINAL OBSTRUCTION [None]
  - LYMPHOMA [None]
  - MALAISE [None]
